FAERS Safety Report 12965051 (Version 1)
Quarter: 2016Q4

REPORT INFORMATION
  Report Type: Spontaneous
  Country: US (occurrence: US)
  Receive Date: 20161122
  Receipt Date: 20161122
  Transmission Date: 20170207
  Serious: Yes (Hospitalization, Other)
  Sender: FDA-Public Use
  Company Number: US-INDIVIOR LIMITED-INDV-096545-2016

PATIENT
  Sex: Female

DRUGS (1)
  1. SUBOXONE [Suspect]
     Active Substance: BUPRENORPHINE HYDROCHLORIDE\NALOXONE HYDROCHLORIDE
     Indication: DRUG DEPENDENCE
     Dosage: ONE 8 MG FILM AND CUTS AND TAKES 3/4 OF ANOTHER 8 MG FILM, TOTAL OF 14 MG, DAILY
     Route: 060
     Dates: start: 2013

REACTIONS (5)
  - Product preparation error [Unknown]
  - Pneumonia [Unknown]
  - Pneumothorax [Unknown]
  - Chest pain [Unknown]
  - Seizure [Recovered/Resolved]

NARRATIVE: CASE EVENT DATE: 2013
